FAERS Safety Report 17901582 (Version 1)
Quarter: 2020Q2

REPORT INFORMATION
  Report Type: Spontaneous
  Country: US (occurrence: US)
  Receive Date: 20200616
  Receipt Date: 20200616
  Transmission Date: 20200714
  Serious: No
  Sender: FDA-Public Use
  Company Number: NVSC2020US168035

PATIENT
  Age: 61 Year
  Sex: Female

DRUGS (1)
  1. VOLTAREN [Suspect]
     Active Substance: DICLOFENAC SODIUM
     Indication: ARTHRITIS
     Dosage: 4 G
     Route: 065
     Dates: start: 20200606, end: 20200607

REACTIONS (10)
  - Incorrect dose administered [Unknown]
  - Rash [Recovering/Resolving]
  - Drug ineffective [Unknown]
  - Adverse reaction [Recovering/Resolving]
  - Malaise [Unknown]
  - Headache [Recovering/Resolving]
  - Product administered at inappropriate site [Unknown]
  - Erythema [Unknown]
  - Feeling hot [Recovering/Resolving]
  - Pain in extremity [Unknown]

NARRATIVE: CASE EVENT DATE: 20200606
